FAERS Safety Report 6778997-4 (Version None)
Quarter: 2010Q2

REPORT INFORMATION
  Report Type: 
  Country: None (occurrence: None)
  Receive Date: 20100618
  Receipt Date: 20100609
  Transmission Date: 20101027
  Serious: Yes (Hospitalization)
  Sender: FDA-Public Use
  Company Number: FR-PFIZER INC-2010072154

PATIENT
  Age: 63 Year
  Sex: Female

DRUGS (9)
  1. MEDROL [Suspect]
     Dosage: UNK
     Route: 048
     Dates: start: 19940101, end: 20100301
  2. METHOTREXATE [Suspect]
     Dosage: UNK
     Route: 048
     Dates: start: 20070901, end: 20100101
  3. PLAQUENIL [Suspect]
     Dosage: UNK
     Route: 048
     Dates: start: 20000701, end: 20050401
  4. THALIDOMIDE [Suspect]
     Dosage: UNK
     Route: 048
     Dates: start: 20040401, end: 20050401
  5. PROTOPIC [Suspect]
     Dosage: UNK
     Dates: start: 20030501
  6. PROTOPIC [Suspect]
     Dosage: UNK
     Route: 061
     Dates: start: 20050401, end: 20050901
  7. MINOCYCLINE [Suspect]
     Dosage: UNK
     Route: 048
     Dates: start: 20050901, end: 20060601
  8. DISULONE [Suspect]
     Dosage: UNK
     Route: 048
     Dates: start: 20060701, end: 20100301
  9. REMICADE [Suspect]
     Dosage: UNK
     Route: 042
     Dates: start: 20100101, end: 20100201

REACTIONS (1)
  - SQUAMOUS CELL CARCINOMA OF THE CERVIX [None]
